FAERS Safety Report 18744903 (Version 2)
Quarter: 2021Q1

REPORT INFORMATION
  Report Type: Spontaneous
  Country: UY (occurrence: UY)
  Receive Date: 20210115
  Receipt Date: 20210127
  Transmission Date: 20210419
  Serious: Yes (Other)
  Sender: FDA-Public Use
  Company Number: UY-PFIZER INC-2021020527

PATIENT
  Age: 11 Year
  Sex: Male

DRUGS (1)
  1. GENOTROPIN [Suspect]
     Active Substance: SOMATROPIN
     Indication: GROWTH HORMONE DEFICIENCY
     Dosage: 0.6 A 1 MG, 7 TIMES PER WEEK
     Dates: start: 20190506

REACTIONS (2)
  - Cryptorchism [Unknown]
  - Hernia [Unknown]

NARRATIVE: CASE EVENT DATE: 2021
